FAERS Safety Report 9380095 (Version 1)
Quarter: 2013Q3

REPORT INFORMATION
  Report Type: Spontaneous
  Country: US (occurrence: None)
  Receive Date: 20130701
  Receipt Date: 20130701
  Transmission Date: 20140515
  Serious: Yes (Other)
  Sender: FDA-Public Use
  Company Number: None

PATIENT
  Age: 5 Year
  Sex: Male
  Weight: 34.02 kg

DRUGS (2)
  1. CLARITIN [Suspect]
     Indication: SEASONAL ALLERGY
     Dosage: 5 MG 2 TABLETS DAILY ORAL (CHEWABLE TABLETS)
     Route: 048
     Dates: start: 20130102, end: 20130303
  2. CHILDREN^S VITAMINS [Concomitant]

REACTIONS (2)
  - Dyskinesia [None]
  - Incorrect drug administration duration [None]
